FAERS Safety Report 19085375 (Version 1)
Quarter: 2021Q2

REPORT INFORMATION
  Report Type: Spontaneous
  Country: US (occurrence: US)
  Receive Date: 20210402
  Receipt Date: 20210402
  Transmission Date: 20210717
  Serious: Yes (Other)
  Sender: FDA-Public Use
  Company Number: US-SUN PHARMACEUTICAL INDUSTRIES LTD-2021R1-288400

PATIENT
  Age: 56 Year
  Sex: Female

DRUGS (1)
  1. GLYCOPYRROLATE. [Suspect]
     Active Substance: GLYCOPYRROLATE
     Dosage: 0.025 PERCENT, DAILY
     Route: 061

REACTIONS (1)
  - Anhidrosis [Not Recovered/Not Resolved]
